FAERS Safety Report 14307992 (Version 1)
Quarter: 2017Q4

REPORT INFORMATION
  Report Type: Report from Study
  Country: US (occurrence: US)
  Receive Date: 20171219
  Receipt Date: 20171219
  Transmission Date: 20180321
  Serious: No
  Sender: FDA-Public Use
  Company Number: US-ALEXION PHARMACEUTICALS INC.-A201713375

PATIENT
  Age: 22 Year
  Sex: Female

DRUGS (1)
  1. STRENSIQ [Suspect]
     Active Substance: ASFOTASE ALFA
     Indication: PRODUCT USED FOR UNKNOWN INDICATION
     Dosage: .61 ML, 6X WEEK
     Route: 065
     Dates: start: 201609

REACTIONS (2)
  - Arthropod bite [Recovered/Resolved]
  - Hypersensitivity [Not Recovered/Not Resolved]
